FAERS Safety Report 13457891 (Version 1)
Quarter: 2017Q2

REPORT INFORMATION
  Report Type: Spontaneous
  Country: BG (occurrence: BG)
  Receive Date: 20170419
  Receipt Date: 20170419
  Transmission Date: 20170830
  Serious: Yes (Other)
  Sender: FDA-Public Use
  Company Number: BG-ASTRAZENECA-2017SE40032

PATIENT
  Age: 66 Year
  Sex: Female

DRUGS (4)
  1. OXYGEN. [Concomitant]
     Active Substance: OXYGEN
  2. SYMBICORT [Suspect]
     Active Substance: BUDESONIDE\FORMOTEROL FUMARATE DIHYDRATE
     Dosage: 160 MCG/4.5 MCG 2X2 INHALATIONS, DAILY.
     Route: 055
  3. DAXAS [Suspect]
     Active Substance: ROFLUMILAST
     Dosage: 500 MCG, DAILY
     Route: 048
  4. THEOPHYLLINE [Concomitant]
     Active Substance: THEOPHYLLINE ANHYDROUS
     Dosage: 2X150 MG DAILY

REACTIONS (1)
  - Chronic obstructive pulmonary disease [Unknown]
